FAERS Safety Report 17362552 (Version 1)
Quarter: 2020Q1

REPORT INFORMATION
  Report Type: Spontaneous
  Country: US (occurrence: US)
  Receive Date: 20200202
  Receipt Date: 20200202
  Transmission Date: 20200409
  Serious: Yes (Other)
  Sender: FDA-Public Use
  Company Number: None

PATIENT
  Age: 65 Year
  Sex: Female
  Weight: 99 kg

DRUGS (9)
  1. VIT D [Concomitant]
     Active Substance: VITAMIN D NOS
  2. ADRENAL HEALTH [Concomitant]
  3. DULOXETINE. [Concomitant]
     Active Substance: DULOXETINE
  4. LEVOTHYROXIN [Concomitant]
     Active Substance: LEVOTHYROXINE
  5. CIPROFLOXACIN 250MG TABLETS [Suspect]
     Active Substance: CIPROFLOXACIN
     Indication: URINARY TRACT INFECTION
     Dosage: ?          QUANTITY:1 TABLET(S);?
     Route: 048
     Dates: start: 20191127, end: 20191130
  6. PROAIR INHALER [Concomitant]
     Active Substance: ALBUTEROL SULFATE
  7. CLONIDINE. [Concomitant]
     Active Substance: CLONIDINE
  8. CIPROFLOXACIN. [Suspect]
     Active Substance: CIPROFLOXACIN
     Indication: URINARY TRACT INFECTION
     Dosage: ?          QUANTITY:1 TABLET(S);?
     Route: 048
     Dates: start: 20200122, end: 20200124
  9. SEROQUEL [Concomitant]
     Active Substance: QUETIAPINE FUMARATE

REACTIONS (10)
  - Hypoaesthesia [None]
  - Tendon rupture [None]
  - Musculoskeletal pain [None]
  - Muscle spasms [None]
  - Anger [None]
  - Pain in extremity [None]
  - Urinary tract infection [None]
  - Pain [None]
  - Muscular weakness [None]
  - Impaired quality of life [None]

NARRATIVE: CASE EVENT DATE: 20191226
